FAERS Safety Report 8901579 (Version 1)
Quarter: 2012Q4

REPORT INFORMATION
  Report Type: Spontaneous
  Country: MX (occurrence: None)
  Receive Date: 20121105
  Receipt Date: 20121105
  Transmission Date: 20130627
  Serious: Yes (Other)
  Sender: FDA-Public Use
  Company Number: 30OCT2012

PATIENT
  Age: 88 Year
  Sex: Female

DRUGS (4)
  1. STALEVO (LEVODOPA, CARBIDOPA, ENTACAPONE) [Suspect]
     Indication: PARKINSON^S DISEASE
     Dosage: 2 tablets (50/12.5/200 mg)
     Route: 048
     Dates: start: 20120902, end: 201209
  2. COPLAVIX [Concomitant]
  3. SERC [Concomitant]
  4. KEPPRA [Concomitant]

REACTIONS (2)
  - Hallucination, visual [None]
  - Parkinson^s disease [None]
